FAERS Safety Report 5811877-7 (Version None)
Quarter: 2008Q3

REPORT INFORMATION
  Report Type: 
  Country: None (occurrence: None)
  Receive Date: 20080716
  Receipt Date: 20080708
  Transmission Date: 20090109
  Serious: Yes (Death, Other)
  Sender: FDA-Public Use
  Company Number: US-PURDUE-USA_2008_0033048

PATIENT
  Age: 25 Year
  Sex: Male

DRUGS (8)
  1. OXYCONTIN [Suspect]
     Indication: PAIN
     Dosage: 120 MG, Q6- 8H
  2. OXYCODONE HCL [Suspect]
     Indication: PAIN
  3. ACTIQ [Suspect]
     Indication: PAIN
  4. DIGITEK [Suspect]
     Indication: DRUG USE FOR UNKNOWN INDICATION
  5. NEULASTA [Concomitant]
  6. XANAX [Concomitant]
  7. AMBIEN [Concomitant]
  8. VICODIN [Suspect]
     Indication: PAIN

REACTIONS (3)
  - HEART RATE DECREASED [None]
  - MULTIPLE DRUG OVERDOSE ACCIDENTAL [None]
  - VOMITING [None]
